FAERS Safety Report 7397596-7 (Version None)
Quarter: 2011Q2

REPORT INFORMATION
  Report Type: 
  Country: None (occurrence: None)
  Receive Date: 20110406
  Receipt Date: 20110331
  Transmission Date: 20111010
  Serious: Yes (Hospitalization)
  Sender: FDA-Public Use
  Company Number: FR-MERCK-1010FRA00030

PATIENT
  Age: 47 Year
  Sex: Female

DRUGS (7)
  1. INDAPAMIDE AND PERINDOPRIL ARGININE [Concomitant]
     Indication: HYPERTENSION
     Route: 048
     Dates: start: 20050101
  2. PANTOPRAZOLE SODIUM [Concomitant]
     Route: 048
     Dates: start: 20071101
  3. TRIAMCINOLONE ACETONIDE [Concomitant]
     Route: 065
     Dates: start: 20030101
  4. OMALIZUMAB [Suspect]
     Route: 058
     Dates: start: 20071101
  5. NIFEDIPINE [Concomitant]
     Indication: HYPERTENSION
     Route: 048
     Dates: start: 20050101
  6. SINGULAIR [Suspect]
     Indication: ASTHMA
     Route: 048
     Dates: start: 20060101
  7. FLUTICASONE PROPIONATE AND SALMETEROL XINAFOATE [Suspect]
     Indication: ASTHMA
     Route: 055
     Dates: start: 20030101

REACTIONS (1)
  - BREAST CANCER [None]
